FAERS Safety Report 23407295 (Version 2)
Quarter: 2024Q1

REPORT INFORMATION
  Report Type: Report from Study
  Country: ES (occurrence: ES)
  Receive Date: 20240116
  Receipt Date: 20240118
  Transmission Date: 20240410
  Serious: Yes (Hospitalization)
  Sender: FDA-Public Use
  Company Number: ES-ABBVIE-5588157

PATIENT
  Age: 78 Year
  Sex: Female

DRUGS (2)
  1. CARBIDOPA\LEVODOPA [Suspect]
     Active Substance: CARBIDOPA\LEVODOPA
     Indication: Parkinson^s disease
     Route: 050
     Dates: start: 20100422
  2. CARBIDOPA\LEVODOPA [Suspect]
     Active Substance: CARBIDOPA\LEVODOPA

REACTIONS (7)
  - Influenza [Recovered/Resolved]
  - Device issue [Unknown]
  - Unevaluable event [Recovered/Resolved]
  - Device issue [Not Recovered/Not Resolved]
  - Device issue [Unknown]
  - Device issue [Unknown]
  - Device connection issue [Recovered/Resolved]

NARRATIVE: CASE EVENT DATE: 20240101
